FAERS Safety Report 10008869 (Version 2)
Quarter: 2014Q1

REPORT INFORMATION
  Report Type: Spontaneous
  Country: US (occurrence: US)
  Receive Date: 20140312
  Receipt Date: 20140312
  Transmission Date: 20141002
  Serious: No
  Sender: FDA-Public Use
  Company Number: US-INCYTE CORPORATION-2012IN000761

PATIENT
  Age: 77 Year
  Sex: Male
  Weight: 68.93 kg

DRUGS (10)
  1. JAKAFI [Suspect]
     Indication: MYELOFIBROSIS
     Dosage: 10 MG, BID
     Route: 048
     Dates: start: 201204
  2. DILTIAZEM [Concomitant]
     Dosage: UNK
  3. ASPIRIN [Concomitant]
     Dosage: 81 MG, QD
     Route: 048
  4. MULTIVITAMINS, PLAIN [Concomitant]
     Dosage: 1 DF, QD
     Route: 048
  5. HYDROCODONE W/ACETAMINOPHEN [Concomitant]
     Dosage: 5/325 MG, EVERY 4 HOURS AS NEEDED
     Route: 048
  6. MORPHINE [Concomitant]
     Dosage: UNK
  7. LISINOPRIL [Concomitant]
     Dosage: 30 MG, QD
     Route: 048
  8. ACETAMINOPHEN [Concomitant]
     Dosage: 500 MG, 2 PRN
  9. CLARITIN [Concomitant]
     Dosage: 10 MG, QD
     Route: 048
     Dates: start: 20110916
  10. CALCIUM CARBONATE W/COLECALCIFEROL [Concomitant]
     Dosage: 500 MG, PRN
     Route: 048
     Dates: start: 20110916

REACTIONS (11)
  - Venous thrombosis limb [Not Recovered/Not Resolved]
  - Pain in extremity [Not Recovered/Not Resolved]
  - Hypoaesthesia [Not Recovered/Not Resolved]
  - Fall [Unknown]
  - Asthenia [Unknown]
  - Paraesthesia [Unknown]
  - Constipation [Not Recovered/Not Resolved]
  - Arthralgia [Not Recovered/Not Resolved]
  - Contusion [Not Recovered/Not Resolved]
  - Fatigue [Not Recovered/Not Resolved]
  - Intervertebral disc protrusion [Not Recovered/Not Resolved]
